FAERS Safety Report 7828919-X (Version None)
Quarter: 2011Q4

REPORT INFORMATION
  Report Type: 
  Country: None (occurrence: None)
  Receive Date: 20111020
  Receipt Date: 20110919
  Transmission Date: 20120403
  Serious: Yes (Hospitalization)
  Sender: FDA-Public Use
  Company Number: CA-US-EMD SERONO, INC.-7079197

PATIENT
  Sex: Male
  Weight: 117 kg

DRUGS (2)
  1. SAIZEN [Suspect]
     Indication: GROWTH HORMONE DEFICIENCY
     Route: 058
     Dates: start: 20110817
  2. SAIZEN [Suspect]
     Dates: start: 20110917

REACTIONS (11)
  - PAIN [None]
  - NASOPHARYNGITIS [None]
  - SOMNOLENCE [None]
  - MYALGIA [None]
  - BODY TEMPERATURE FLUCTUATION [None]
  - PRODUCTIVE COUGH [None]
  - HYPOKALAEMIA [None]
  - FATIGUE [None]
  - DIZZINESS [None]
  - INCREASED UPPER AIRWAY SECRETION [None]
  - NAUSEA [None]
